FAERS Safety Report 4751845-X (Version None)
Quarter: 2005Q3

REPORT INFORMATION
  Report Type: 
  Country: None (occurrence: None)
  Receive Date: 20050822
  Receipt Date: 20050512
  Transmission Date: 20060218
  Serious: Yes (Other)
  Sender: FDA-Public Use
  Company Number: PHEH2005US05428

PATIENT
  Age: 64 Year
  Sex: Female

DRUGS (4)
  1. ZELNORM [Suspect]
     Indication: CONSTIPATION
     Dosage: 6 MG, ONCE/SINGLE, ORAL
     Route: 048
     Dates: start: 20050511, end: 20050511
  2. XANAX [Concomitant]
  3. SYNTHROID [Concomitant]
  4. NORVASC [Concomitant]

REACTIONS (1)
  - DEPRESSION [None]
